FAERS Safety Report 10019315 (Version 3)
Quarter: 2014Q2

REPORT INFORMATION
  Report Type: Spontaneous
  Country: JP (occurrence: JP)
  Receive Date: 20140318
  Receipt Date: 20140506
  Transmission Date: 20141212
  Serious: Yes (Hospitalization)
  Sender: FDA-Public Use
  Company Number: JP-NAPPMUNDI-GBR-2014-0017371

PATIENT
  Age: 81 Year
  Sex: Female

DRUGS (7)
  1. NORSPAN 5MG [Suspect]
     Indication: BACK PAIN
     Dosage: 5 MCG, Q1H
     Route: 062
     Dates: start: 20140224, end: 20140225
  2. TRAMADOL AND ACETAMINOPHEN [Suspect]
     Indication: RHEUMATIC DISORDER
     Dosage: 3 DF, DAILY
     Route: 048
     Dates: start: 20130111
  3. TRAMADOL AND ACETAMINOPHEN [Suspect]
     Dosage: 2 DF, DAILY
     Route: 048
     Dates: start: 20120523, end: 20131231
  4. TRAMADOL AND ACETAMINOPHEN [Suspect]
     Dosage: 1 DF, DAILY
     Route: 048
     Dates: start: 20120509, end: 20120522
  5. CELECOX [Concomitant]
     Indication: RHEUMATIC DISORDER
     Dosage: UNK
     Route: 048
  6. PRIMPERAN [Concomitant]
     Indication: PROPHYLAXIS OF NAUSEA AND VOMITING
     Dosage: 15 MG, DAILY
     Route: 048
  7. PREDNISOLONE [Concomitant]
     Indication: RHEUMATIC DISORDER
     Dosage: UNK
     Route: 048

REACTIONS (3)
  - Sepsis [Recovered/Resolved]
  - Delirium [Not Recovered/Not Resolved]
  - Pyrexia [Recovered/Resolved]
